FAERS Safety Report 12170424 (Version 2)
Quarter: 2016Q2

REPORT INFORMATION
  Report Type: Spontaneous
  Country: US (occurrence: US)
  Receive Date: 20160311
  Receipt Date: 20160519
  Transmission Date: 20160815
  Serious: No
  Sender: FDA-Public Use
  Company Number: US-009507513-1603USA005340

PATIENT
  Sex: Female
  Weight: 82.86 kg

DRUGS (1)
  1. PREGNYL [Suspect]
     Active Substance: CHORIOGONADOTROPIN ALFA
     Indication: WEIGHT CONTROL
     Dosage: RANGING IN DOSE FROM 175 TO 200 IU DAILY
     Route: 058

REACTIONS (2)
  - Thyroiditis [Recovered/Resolved]
  - Product use issue [Unknown]
